FAERS Safety Report 13595299 (Version 4)
Quarter: 2017Q3

REPORT INFORMATION
  Report Type: Report from Study
  Country: None (occurrence: US)
  Receive Date: 20170531
  Receipt Date: 20170731
  Transmission Date: 20171127
  Serious: Yes (Other)
  Sender: FDA-Public Use
  Company Number: US-ABBVIE-17K-163-1989461-00

PATIENT
  Age: 55 Year
  Sex: Female

DRUGS (5)
  1. HUMIRA [Suspect]
     Active Substance: ADALIMUMAB
     Dosage: DAY 1
     Route: 058
     Dates: start: 201706, end: 201706
  2. HUMIRA [Suspect]
     Active Substance: ADALIMUMAB
     Dosage: DAY 29
     Route: 058
     Dates: start: 2017
  3. HUMIRA [Suspect]
     Active Substance: ADALIMUMAB
     Route: 058
     Dates: start: 20170525
  4. HUMIRA [Suspect]
     Active Substance: ADALIMUMAB
     Indication: COLITIS ULCERATIVE
     Route: 058
     Dates: end: 201611
  5. HUMIRA [Suspect]
     Active Substance: ADALIMUMAB
     Dosage: DAY 15
     Route: 058
     Dates: start: 2017, end: 2017

REACTIONS (10)
  - Fatigue [Unknown]
  - Nausea [Recovered/Resolved]
  - Incorrect dose administered [Unknown]
  - Fear [Unknown]
  - Injection site pain [Not Recovered/Not Resolved]
  - Biopsy [Unknown]
  - Nausea [Recovered/Resolved]
  - Injection site erythema [Not Recovered/Not Resolved]
  - Asthenia [Unknown]
  - Neoplasm [Unknown]

NARRATIVE: CASE EVENT DATE: 20170525
